FAERS Safety Report 6802673-2 (Version None)
Quarter: 2010Q2

REPORT INFORMATION
  Report Type: 
  Country: None (occurrence: None)
  Receive Date: 20100628
  Receipt Date: 20100617
  Transmission Date: 20101027
  Serious: Yes (Other)
  Sender: FDA-Public Use
  Company Number: US-CELGENEUS-163-21880-10061866

PATIENT
  Sex: Male

DRUGS (1)
  1. REVLIMID [Suspect]
     Route: 048
     Dates: start: 20090401, end: 20100616

REACTIONS (7)
  - BLOOD GLUCOSE INCREASED [None]
  - LETHARGY [None]
  - POLLAKIURIA [None]
  - PULMONARY THROMBOSIS [None]
  - SPLENOMEGALY [None]
  - THIRST [None]
  - THROMBOSIS [None]
